FAERS Safety Report 23307466 (Version 1)
Quarter: 2023Q4

REPORT INFORMATION
  Report Type: Spontaneous
  Country: US (occurrence: None)
  Receive Date: 20231215
  Receipt Date: 20231215
  Transmission Date: 20240110
  Serious: No
  Sender: FDA-Public Use
  Company Number: None

PATIENT
  Age: 80 Year
  Sex: Female
  Weight: 78.02 kg

DRUGS (1)
  1. ACTEMRA [Suspect]
     Active Substance: TOCILIZUMAB
     Indication: Rheumatoid arthritis
     Dosage: INFUSE 314 MG INTRAVENOUSLY EVERY 4 WEEKS AS DIRECTED.?
     Route: 042
     Dates: start: 202312

REACTIONS (2)
  - Thrombosis [None]
  - Infusion related reaction [None]
